FAERS Safety Report 12993036 (Version 1)
Quarter: 2016Q4

REPORT INFORMATION
  Report Type: Spontaneous
  Country: US (occurrence: US)
  Receive Date: 20161202
  Receipt Date: 20161202
  Transmission Date: 20170207
  Serious: No
  Sender: FDA-Public Use
  Company Number: US-TEVA-712398ACC

PATIENT
  Sex: Female
  Weight: 90.35 kg

DRUGS (2)
  1. ALBUTEROL DISKUS [Concomitant]
     Indication: ASTHMA
  2. PARAGARD T 380A [Suspect]
     Active Substance: COPPER
     Indication: CONTRACEPTION
     Dates: start: 20161004, end: 20161031

REACTIONS (1)
  - Device expulsion [Recovered/Resolved]
